FAERS Safety Report 9338952 (Version 1)
Quarter: 2013Q2

REPORT INFORMATION
  Report Type: Spontaneous
  Country: US (occurrence: None)
  Receive Date: 20130529
  Receipt Date: 20130529
  Transmission Date: 20140414
  Serious: Yes (Hospitalization)
  Sender: FDA-Public Use
  Company Number: 2011029502

PATIENT
  Sex: Male
  Weight: 102.06 kg

DRUGS (21)
  1. ZEMAIRA (ALPHA-1 PROTEINASE INHIBITOR (HUMAN)) [Suspect]
     Indication: ALPHA-1 ANTI-TRYPSIN DEFICIENCY
     Dosage: 60 MG/KG 1X/7 DAYS, INFUSED AT 0.08 ML/KG/MIN (7.8 ML/MIN) INTRAVENOUS (NOT OTHERWISE SPECIFIED)
     Dates: start: 20100326
  2. PRAVACHOL (PRAVASTATIN SODIUM) [Concomitant]
  3. ADVAIR (SERETIDE /01420901/) [Concomitant]
  4. COREG (CARVEDILOL) [Concomitant]
  5. ANDRODERM (TESTOSTERONE) [Concomitant]
  6. RANITIDINE (RANITIDINE) [Concomitant]
  7. SODIUM CHLORIDE [Concomitant]
  8. HYDROCHLOROTHIAZIDE (HYDROCHLOROTHIAZIDE) [Concomitant]
  9. LEXAPRO (ESCITALOPRAM OXALATE) [Concomitant]
  10. ALENDRONATE (ALENDRONATE SODIUM) [Concomitant]
  11. MEDROL (METHYLPREDNISOLONE ACETATE) [Concomitant]
  12. PREDNISONE (PREDNISONE) [Concomitant]
  13. COMBIVENT (COMBIVENT /01261001/) [Concomitant]
  14. ALBUTEROL (SALBUTAMOL) [Concomitant]
  15. SPIRIVA (TIOTROPIUM BROMIDE) [Concomitant]
  16. NITROGLYCERIN (GLYCERYL TRINITRATE) [Concomitant]
  17. HYDROCODONE-APAP (PROCET /01554201/) [Concomitant]
  18. KLOR-CON (POTASSIUM CHLORIDE) [Concomitant]
  19. DIPHENHYDRAMINE (DIPHENHYDRAMINE) [Concomitant]
  20. EPI-PEN (EPINEPHRINE HYDROCHLORIDE) [Concomitant]
  21. LMX (LIDOCAINE) [Concomitant]

REACTIONS (2)
  - Fatigue [None]
  - Pneumonia [None]
